FAERS Safety Report 17835051 (Version 1)
Quarter: 2020Q3

REPORT INFORMATION
  Report Type: Report from Study
  Country: MX (occurrence: MX)
  Receive Date: 20200528
  Receipt Date: 20200528
  Transmission Date: 20201104
  Serious: Yes (Other)
  Sender: FDA-Public Use
  Company Number: NVSC2020MX143163

PATIENT
  Age: 64 Year
  Sex: Female
  Weight: 80 kg

DRUGS (10)
  1. ATARAX [Concomitant]
     Active Substance: HYDROXYZINE HYDROCHLORIDE
     Indication: INFLAMMATION
     Dosage: 10 MG, BID
     Route: 048
     Dates: start: 201508
  2. PREGABALIN. [Concomitant]
     Active Substance: PREGABALIN
     Indication: PAIN
     Dosage: UNK
     Route: 065
     Dates: start: 2016
  3. GABAPENTIN. [Concomitant]
     Active Substance: GABAPENTIN
     Indication: PAIN
     Dosage: 300 MG, QD
     Route: 065
     Dates: start: 2016
  4. XOLAIR [Suspect]
     Active Substance: OMALIZUMAB
     Indication: URTICARIA
     Dosage: UNK
     Route: 065
     Dates: start: 201707
  5. EUTIROX [Concomitant]
     Active Substance: LEVOTHYROXINE SODIUM
     Indication: HYPOTHYROIDISM
     Dosage: 100 MG, QD
     Route: 048
     Dates: start: 2017
  6. XOLAIR [Suspect]
     Active Substance: OMALIZUMAB
     Dosage: UNK
     Route: 065
     Dates: start: 20200509
  7. METICORTEN [Concomitant]
     Active Substance: PREDNISONE
     Indication: URTICARIA
     Dosage: 0.25 MG (50MG)
     Route: 048
     Dates: start: 201508, end: 2017
  8. CALCORT [Concomitant]
     Active Substance: DEFLAZACORT
     Indication: URTICARIA
     Dosage: 30 MG FOR 4 DAYS WHEN THERE IS EVENT
     Route: 048
     Dates: start: 2017
  9. AVAPENA [Concomitant]
     Indication: ANGIOEDEMA
     Dosage: (20 MG/ 2 ML  WHEN THERE IS EVENT
     Route: 030
     Dates: start: 201508
  10. ACLASTA [Suspect]
     Active Substance: ZOLEDRONIC ACID
     Indication: OSTEOPOROSIS
     Dosage: 1 (UNKNOWN DOSAGE)
     Route: 042
     Dates: start: 2013, end: 2018

REACTIONS (16)
  - Stomatitis [Recovered/Resolved]
  - Cushing^s syndrome [Recovered/Resolved]
  - Paralysis [Recovered/Resolved]
  - Fibromyalgia [Not Recovered/Not Resolved]
  - Feeling abnormal [Unknown]
  - Urticaria chronic [Recovered/Resolved]
  - Diabetes mellitus [Not Recovered/Not Resolved]
  - Angioedema [Recovered/Resolved]
  - Speech disorder [Recovered/Resolved]
  - Eye inflammation [Recovered/Resolved]
  - Infection [Recovered/Resolved]
  - Off label use [Unknown]
  - Pruritus [Not Recovered/Not Resolved]
  - Headache [Recovered/Resolved]
  - Weight increased [Not Recovered/Not Resolved]
  - Angioedema [Recovered/Resolved]

NARRATIVE: CASE EVENT DATE: 2015
